FAERS Safety Report 6934109-5 (Version None)
Quarter: 2010Q3

REPORT INFORMATION
  Report Type: 
  Country: None (occurrence: None)
  Receive Date: 20100820
  Receipt Date: 20100818
  Transmission Date: 20110219
  Serious: Yes (Hospitalization, Other)
  Sender: FDA-Public Use
  Company Number: US-MERCK-1001USA00515

PATIENT
  Age: 74 Year
  Sex: Male
  Weight: 80 kg

DRUGS (4)
  1. FOSAMAX [Suspect]
     Indication: OSTEOPOROSIS
     Route: 048
     Dates: start: 20000314, end: 20010415
  2. FOSAMAX [Suspect]
     Route: 048
     Dates: start: 20010416, end: 20080101
  3. FOSAMAX [Suspect]
     Indication: OSTEOPENIA
     Route: 048
     Dates: start: 20000314, end: 20010415
  4. FOSAMAX [Suspect]
     Route: 048
     Dates: start: 20010416, end: 20080101

REACTIONS (47)
  - ANAESTHETIC COMPLICATION [None]
  - ANXIETY [None]
  - APHTHOUS STOMATITIS [None]
  - ARTHROPATHY [None]
  - BASAL CELL CARCINOMA [None]
  - BENIGN PROSTATIC HYPERPLASIA [None]
  - BLOOD CHOLESTEROL INCREASED [None]
  - BONE DISORDER [None]
  - BURSITIS [None]
  - CALCULUS PROSTATIC [None]
  - CHEST PAIN [None]
  - CHRONIC OBSTRUCTIVE PULMONARY DISEASE [None]
  - DECREASED APPETITE [None]
  - DERMATITIS PSORIASIFORM [None]
  - DYSPNOEA [None]
  - EAR DISCOMFORT [None]
  - EXOSTOSIS [None]
  - FALL [None]
  - FIBROMYALGIA [None]
  - GASTROOESOPHAGEAL REFLUX DISEASE [None]
  - GINGIVAL ERYTHEMA [None]
  - GOUTY ARTHRITIS [None]
  - HERNIA [None]
  - HYPOAESTHESIA [None]
  - INGUINAL HERNIA [None]
  - INJURY [None]
  - INSOMNIA [None]
  - JOINT CREPITATION [None]
  - LATEX ALLERGY [None]
  - LUNG NEOPLASM [None]
  - MALIGNANT MELANOMA [None]
  - MICTURITION URGENCY [None]
  - MOUTH ULCERATION [None]
  - ORAL TORUS [None]
  - OSTEOARTHRITIS [None]
  - OSTEONECROSIS OF JAW [None]
  - PAIN IN EXTREMITY [None]
  - PARAESTHESIA [None]
  - POLLAKIURIA [None]
  - PROSTATIC ABSCESS [None]
  - PROSTATIC CYST [None]
  - PROSTATITIS [None]
  - PSORIASIS [None]
  - SQUAMOUS CELL CARCINOMA [None]
  - SUPERFICIAL SPREADING MELANOMA STAGE III [None]
  - VIRAL INFECTION [None]
  - WEIGHT DECREASED [None]
